FAERS Safety Report 10251293 (Version 1)
Quarter: 2014Q2

REPORT INFORMATION
  Report Type: Other
  Country: DE (occurrence: DE)
  Receive Date: 20140621
  Receipt Date: 20140621
  Transmission Date: 20141212
  Serious: No
  Sender: FDA-Public Use
  Company Number: DE-LUPIN PHARMACEUTICALS INC.-E2B_00001083

PATIENT
  Age: 73 Year
  Sex: Female
  Weight: 63 kg

DRUGS (3)
  1. XARELTO [Suspect]
     Indication: ATRIAL FIBRILLATION
     Route: 048
  2. SIMVASTATIN [Suspect]
     Indication: HYPERCHOLESTEROLAEMIA
     Route: 048
  3. BELOC-ZOK MITE 47.5 [Concomitant]
     Indication: ATRIAL FIBRILLATION
     Dosage: 1 X 1
     Route: 048

REACTIONS (1)
  - Myalgia [Recovered/Resolved]
